FAERS Safety Report 6743519-0 (Version None)
Quarter: 2010Q2

REPORT INFORMATION
  Report Type: 
  Country: None (occurrence: None)
  Receive Date: 20100526
  Receipt Date: 20100526
  Transmission Date: 20101027
  Serious: No
  Sender: FDA-Public Use
  Company Number: None

PATIENT
  Sex: Female
  Weight: 58.0604 kg

DRUGS (5)
  1. AVELOX [Suspect]
     Indication: SINUSITIS
     Dosage: 1 DAILY
     Dates: start: 20100429
  2. AVELOX [Suspect]
     Indication: SINUSITIS
     Dosage: 1 DAILY
     Dates: start: 20100430
  3. AVELOX [Suspect]
     Indication: SINUSITIS
     Dosage: 1 DAILY
     Dates: start: 20100501
  4. AVELOX [Suspect]
     Indication: SINUSITIS
     Dosage: 1 DAILY
     Dates: start: 20100502
  5. AVELOX [Suspect]
     Indication: SINUSITIS
     Dosage: 1 DAILY
     Dates: start: 20100503

REACTIONS (1)
  - HEART RATE INCREASED [None]
